FAERS Safety Report 4448579-8 (Version None)
Quarter: 2004Q3

REPORT INFORMATION
  Report Type: 
  Country: None (occurrence: None)
  Receive Date: 20040730
  Receipt Date: 20031217
  Transmission Date: 20050211
  Serious: Yes (Disabling)
  Sender: FDA-Public Use
  Company Number: 2003-12-1553

PATIENT
  Age: 40 Year
  Sex: Female
  Weight: 70.3075 kg

DRUGS (2)
  1. INTRON A [Suspect]
     Indication: METASTATIC RENAL CELL CARCINOMA
     Dosage: 2 MIU QD SUBCUTANEOUS
     Route: 058
     Dates: start: 20020122, end: 20021028
  2. 5-FU INJECTABLE [Suspect]
     Indication: METASTATIC RENAL CELL CARCINOMA
     Dates: start: 20020101

REACTIONS (1)
  - ARTHRALGIA [None]
